FAERS Safety Report 9730392 (Version 2)
Quarter: 2013Q4

REPORT INFORMATION
  Report Type: Spontaneous
  Country: DE (occurrence: DE)
  Receive Date: 20131202
  Receipt Date: 20131223
  Transmission Date: 20140711
  Serious: Yes (Other)
  Sender: FDA-Public Use
  Company Number: DE-ELI_LILLY_AND_COMPANY-DE201311007235

PATIENT
  Age: 66 Year
  Sex: Female

DRUGS (5)
  1. CYMBALTA [Suspect]
     Indication: PAIN
     Dosage: 30 MG, QD
     Route: 048
     Dates: start: 201307
  2. CYMBALTA [Suspect]
     Dosage: 30 MG, BID
     Route: 048
     Dates: end: 20131115
  3. DICLOFENAC [Concomitant]
     Indication: PRODUCT USED FOR UNKNOWN INDICATION
     Dosage: UNK, PRN
     Route: 065
  4. ALLOPURINOL [Concomitant]
     Indication: PRODUCT USED FOR UNKNOWN INDICATION
     Dosage: UNK, UNKNOWN
     Route: 065
  5. TRAMAL [Concomitant]
     Indication: RENAL DISORDER
     Dosage: UNK, PRN
     Route: 065

REACTIONS (5)
  - Cataract [Not Recovered/Not Resolved]
  - Mental disorder [Recovered/Resolved]
  - Palpitations [Recovered/Resolved]
  - Vision blurred [Not Recovered/Not Resolved]
  - Glaucoma [Unknown]
